FAERS Safety Report 6938926-7 (Version None)
Quarter: 2010Q3

REPORT INFORMATION
  Report Type: 
  Country: None (occurrence: None)
  Receive Date: 20100824
  Receipt Date: 20100818
  Transmission Date: 20110219
  Serious: Yes (Hospitalization)
  Sender: FDA-Public Use
  Company Number: B0671056A

PATIENT
  Sex: Female

DRUGS (1)
  1. AMOXICILLIN AND CLAVULANATE POTASSIUM [Suspect]
     Indication: TOOTH ABSCESS
     Dosage: 2TAB PER DAY
     Route: 048
     Dates: start: 20090401

REACTIONS (4)
  - ANGIOEDEMA [None]
  - DYSPNOEA [None]
  - PRURITUS [None]
  - URTICARIA [None]
